FAERS Safety Report 18264908 (Version 2)
Quarter: 2022Q3

REPORT INFORMATION
  Report Type: Spontaneous
  Country: ZA (occurrence: ZA)
  Receive Date: 20200914
  Receipt Date: 20220812
  Transmission Date: 20221026
  Serious: Yes (Other)
  Sender: FDA-Public Use
  Company Number: ZA-PFIZER INC-2018066590

PATIENT
  Age: 15 Year
  Sex: Male
  Weight: 79.4 kg

DRUGS (2)
  1. ENBREL [Suspect]
     Active Substance: ETANERCEPT
     Dosage: 50 MG, WEEKLY
     Route: 058
     Dates: start: 20131101
  2. METHOTREXATE [Suspect]
     Active Substance: METHOTREXATE
     Dosage: 15 MG, WEEKLY
     Route: 058
     Dates: start: 20130201, end: 20140401

REACTIONS (8)
  - Lipoma [Unknown]
  - Therapeutic product effect incomplete [Unknown]
  - Temporomandibular joint syndrome [Unknown]
  - Joint swelling [Unknown]
  - Alanine aminotransferase decreased [Unknown]
  - Aspartate aminotransferase increased [Unknown]
  - Blood creatinine decreased [Unknown]
  - Haemoglobin increased [Unknown]

NARRATIVE: CASE EVENT DATE: 20140221
